FAERS Safety Report 8956329 (Version 1)
Quarter: 2012Q4

REPORT INFORMATION
  Report Type: 
  Country: GB (occurrence: GB)
  Receive Date: 20121210
  Receipt Date: 20121210
  Transmission Date: 20130627
  Serious: Yes (Other)
  Sender: FDA-Public Use
  Company Number: GB-JNJFOC-20040908146

PATIENT
  Age: 60 Year
  Sex: Male
  Weight: 81.5 kg

DRUGS (1)
  1. IBUPROFEN [Suspect]
     Indication: ARTHRITIS
     Route: 048
     Dates: start: 200303, end: 20030402

REACTIONS (2)
  - Skin exfoliation [Recovered/Resolved]
  - Hepatitis acute [Recovered/Resolved]
